FAERS Safety Report 23243402 (Version 1)
Quarter: 2023Q4

REPORT INFORMATION
  Report Type: Spontaneous
  Country: CN (occurrence: CN)
  Receive Date: 20231130
  Receipt Date: 20231130
  Transmission Date: 20240109
  Serious: Yes (Other)
  Sender: FDA-Public Use
  Company Number: None

PATIENT
  Age: 90 Year
  Sex: Male
  Weight: 60 kg

DRUGS (3)
  1. CLINOMEL [Suspect]
     Active Substance: AMINO ACIDS\DEXTROSE\ELECTROLYTES NOS\SOYBEAN OIL
     Indication: Adjuvant therapy
     Dosage: (DOSAGE FORM: INJECTION) 1000 ML ONCE DAILY
     Route: 041
     Dates: start: 20190215, end: 20190222
  2. HEPARIN SODIUM [Suspect]
     Active Substance: HEPARIN SODIUM
     Dosage: (FLUSHING SOLUTION) AT AN UNSPECIFIED DOSE AND FREQUENCY
     Route: 065
     Dates: end: 20190222
  3. HERBALS [Suspect]
     Active Substance: HERBALS
     Dosage: UNK
     Route: 065
     Dates: end: 20190222

REACTIONS (2)
  - Prothrombin time prolonged [Recovering/Resolving]
  - Fat overload syndrome [Unknown]

NARRATIVE: CASE EVENT DATE: 20190222
